FAERS Safety Report 9639723 (Version 1)
Quarter: 2013Q4

REPORT INFORMATION
  Report Type: Spontaneous
  Country: US (occurrence: None)
  Receive Date: 20131021
  Receipt Date: 20131021
  Transmission Date: 20140711
  Serious: Yes (Life-Threatening)
  Sender: FDA-Public Use
  Company Number: None

PATIENT
  Age: 83 Year
  Sex: Male
  Weight: 68.95 kg

DRUGS (3)
  1. PROPRANOLOL HCL [Suspect]
     Indication: TREMOR
     Dosage: 10 MG 2 TWICE A DAY MORNING ONE AND NIGHT ONE TABLET BY MOUTH
     Route: 048
     Dates: start: 20120605, end: 20130908
  2. OMEPRAZOLE [Concomitant]
  3. FINASTERIDE [Concomitant]

REACTIONS (3)
  - Daydreaming [None]
  - Amnesia [None]
  - Memory impairment [None]
